FAERS Safety Report 7215918-4 (Version None)
Quarter: 2011Q1

REPORT INFORMATION
  Report Type: 
  Country: None (occurrence: None)
  Receive Date: 20110104
  Receipt Date: 20110104
  Transmission Date: 20110831
  Serious: No
  Sender: FDA-Public Use
  Company Number: None

PATIENT
  Sex: Female
  Weight: 81.6475 kg

DRUGS (1)
  1. ZICAM COLD REMEDY GEL SWABS ZRCUM GLUCOICUM 2X MATRIXX IN. [Suspect]
     Indication: ANOSMIA
     Dosage: FIRST SIGN OF COLD UNTIL 48 H. EVERY 4 HOUR
     Dates: start: 20060105, end: 20060109

REACTIONS (2)
  - DYSGEUSIA [None]
  - ANOSMIA [None]
